FAERS Safety Report 17117140 (Version 1)
Quarter: 2019Q4

REPORT INFORMATION
  Report Type: Spontaneous
  Country: ES (occurrence: ES)
  Receive Date: 20191205
  Receipt Date: 20191205
  Transmission Date: 20200122
  Serious: Yes (Other)
  Sender: FDA-Public Use
  Company Number: ES-VIIV HEALTHCARE LIMITED-ES2019220071

PATIENT
  Age: 4 Decade
  Sex: Male

DRUGS (1)
  1. TRIUMEQ [Suspect]
     Active Substance: ABACAVIR SULFATE\DOLUTEGRAVIR SODIUM\LAMIVUDINE
     Indication: PRODUCT USED FOR UNKNOWN INDICATION
     Dosage: UNK
     Route: 048
     Dates: start: 20180615, end: 20180625

REACTIONS (5)
  - Pruritus [Unknown]
  - Medication error [Recovered/Resolved]
  - Pyrexia [Unknown]
  - Renal impairment [Unknown]
  - Sepsis [Unknown]

NARRATIVE: CASE EVENT DATE: 20180615
